FAERS Safety Report 4833695-9 (Version None)
Quarter: 2005Q4

REPORT INFORMATION
  Report Type: 
  Country: None (occurrence: None)
  Receive Date: 20051114
  Receipt Date: 20051103
  Transmission Date: 20060501
  Serious: Yes (Other)
  Sender: FDA-Public Use
  Company Number: USA0511112710

PATIENT
  Age: 64 Year
  Sex: Female

DRUGS (3)
  1. FORTEO [Suspect]
     Indication: OSTEOPOROSIS
     Dates: start: 20051101, end: 20051101
  2. DEPAKOTE [Concomitant]
  3. MOBIC [Concomitant]

REACTIONS (2)
  - CONVULSION [None]
  - PHARMACEUTICAL PRODUCT COMPLAINT [None]
